FAERS Safety Report 25778212 (Version 1)
Quarter: 2025Q3

REPORT INFORMATION
  Report Type: Spontaneous
  Country: EU (occurrence: EU)
  Receive Date: 20250909
  Receipt Date: 20250909
  Transmission Date: 20251021
  Serious: Yes (Hospitalization)
  Sender: ROCHE
  Company Number: None

PATIENT
  Age: 63 Year
  Sex: Female

DRUGS (1)
  1. OCREVUS [Suspect]
     Active Substance: OCRELIZUMAB
     Indication: Multiple sclerosis
     Dosage: PULSE THERAPY WITH 600 MG IV EVERY 6-7 MONTHS?LAST DOSE 24-FEB-2025
     Route: 042
     Dates: start: 20200520

REACTIONS (2)
  - Ovarian granulosa cell tumour [Recovering/Resolving]
  - Endometrial cancer [Recovering/Resolving]

NARRATIVE: CASE EVENT DATE: 20250505
